FAERS Safety Report 5106872-X (Version None)
Quarter: 2006Q3

REPORT INFORMATION
  Report Type: 
  Country: None (occurrence: None)
  Receive Date: 20060913
  Receipt Date: 20060904
  Transmission Date: 20061208
  Serious: Yes (Hospitalization)
  Sender: FDA-Public Use
  Company Number: TCI2006A01267

PATIENT
  Age: 50 Year
  Sex: Male

DRUGS (4)
  1. PIOGLITAZONE HCL [Suspect]
     Indication: DIABETES MELLITUS NON-INSULIN-DEPENDENT
     Dosage: 15 MG OR PLACEBO (0-12 W) (1 IN 1 D); PER ORAL
     Route: 048
     Dates: start: 20060223, end: 20060314
  2. METFORMIN HCL [Suspect]
     Indication: DIABETES MELLITUS NON-INSULIN-DEPENDENT
     Dosage: 500 MG (250 MG, 2 IN 1 D); PER ORAL (SEE IMAGE)
     Route: 048
     Dates: start: 20051130, end: 20060314
  3. METFORMIN HCL [Suspect]
     Indication: DIABETES MELLITUS NON-INSULIN-DEPENDENT
     Dosage: 500 MG (250 MG, 2 IN 1 D); PER ORAL (SEE IMAGE)
     Route: 048
     Dates: start: 20060322, end: 20060322
  4. METFORMIN HCL [Suspect]
     Indication: DIABETES MELLITUS NON-INSULIN-DEPENDENT
     Dosage: 500 MG (250 MG, 2 IN 1 D); PER ORAL (SEE IMAGE)
     Route: 048
     Dates: start: 20060323

REACTIONS (6)
  - APPENDICITIS [None]
  - DIVERTICULUM INTESTINAL [None]
  - DRUG INEFFECTIVE [None]
  - ENTERITIS INFECTIOUS [None]
  - HAEMATOCRIT DECREASED [None]
  - ILEITIS [None]
